FAERS Safety Report 4568284-7 (Version None)
Quarter: 2005Q1

REPORT INFORMATION
  Report Type: 
  Country: None (occurrence: None)
  Receive Date: 20050202
  Receipt Date: 20041210
  Transmission Date: 20050727
  Serious: Yes (Other)
  Sender: FDA-Public Use
  Company Number: US-GLAXOSMITHKLINE-A0536869A

PATIENT
  Age: 64 Year
  Sex: Female

DRUGS (7)
  1. AVANDIA [Suspect]
     Dosage: 4MG PER DAY
     Route: 048
     Dates: start: 20040917, end: 20041206
  2. METFORMIN HCL [Suspect]
     Dosage: 1000MG TWICE PER DAY
     Route: 048
     Dates: start: 20040917, end: 20041207
  3. LISINOPRIL [Concomitant]
     Indication: DRUG USE FOR UNKNOWN INDICATION
  4. METOPROLOL [Concomitant]
     Indication: DRUG USE FOR UNKNOWN INDICATION
  5. HYDROCHLOROTHIAZIDE [Concomitant]
     Indication: DRUG USE FOR UNKNOWN INDICATION
  6. HYDRALAZINE HCL [Concomitant]
     Indication: DRUG USE FOR UNKNOWN INDICATION
  7. FOLIC ACID [Concomitant]
     Indication: DRUG USE FOR UNKNOWN INDICATION

REACTIONS (4)
  - BLOOD CREATININE INCREASED [None]
  - DIARRHOEA [None]
  - HALLUCINATION [None]
  - WEIGHT INCREASED [None]
